FAERS Safety Report 10172952 (Version 1)
Quarter: 2014Q2

REPORT INFORMATION
  Report Type: Report from Study
  Country: NZ (occurrence: NZ)
  Receive Date: 20140515
  Receipt Date: 20140515
  Transmission Date: 20141212
  Serious: Yes (Other)
  Sender: FDA-Public Use
  Company Number: NZ-JNJFOC-20140504893

PATIENT
  Age: 37 Year
  Sex: Male
  Weight: 130.8 kg

DRUGS (1)
  1. STELARA [Suspect]
     Indication: PSORIASIS
     Route: 058
     Dates: start: 20120516

REACTIONS (2)
  - Acanthoma [Unknown]
  - Inappropriate schedule of drug administration [Unknown]
